FAERS Safety Report 5753336-6 (Version None)
Quarter: 2008Q2

REPORT INFORMATION
  Report Type: 
  Country: None (occurrence: None)
  Receive Date: 20080530
  Receipt Date: 20080528
  Transmission Date: 20081010
  Serious: Yes (Death, Hospitalization)
  Sender: FDA-Public Use
  Company Number: JP-BAYER-200810909BYL

PATIENT
  Age: 71 Year
  Sex: Male
  Weight: 45 kg

DRUGS (35)
  1. NEXAVAR [Suspect]
     Indication: RENAL CELL CARCINOMA STAGE IV
     Dosage: TOTAL DAILY DOSE: 400 MG
     Route: 048
     Dates: start: 20080401, end: 20080403
  2. CARVISKEN [Concomitant]
     Indication: DRUG USE FOR UNKNOWN INDICATION
     Route: 048
     Dates: start: 20080401, end: 20080409
  3. URINORM [Concomitant]
     Indication: DRUG USE FOR UNKNOWN INDICATION
     Route: 048
     Dates: start: 20080401, end: 20080409
  4. KALIMATE [Concomitant]
     Indication: DRUG USE FOR UNKNOWN INDICATION
     Route: 048
     Dates: start: 20080401, end: 20080409
  5. SELBEX [Concomitant]
     Indication: DRUG USE FOR UNKNOWN INDICATION
     Route: 048
     Dates: start: 20080401, end: 20080409
  6. VOLTAREN [Concomitant]
     Indication: DRUG USE FOR UNKNOWN INDICATION
     Route: 048
     Dates: start: 20080401, end: 20080409
  7. LASIX [Concomitant]
     Indication: DRUG USE FOR UNKNOWN INDICATION
     Route: 048
     Dates: start: 20080401, end: 20080409
  8. HACHIAZULE [Concomitant]
     Indication: DRUG USE FOR UNKNOWN INDICATION
     Route: 048
     Dates: start: 20080401, end: 20080404
  9. DECADRON [Concomitant]
     Indication: DRUG USE FOR UNKNOWN INDICATION
     Route: 048
     Dates: start: 20080401, end: 20080409
  10. DECADRON [Concomitant]
     Route: 048
     Dates: start: 20080405, end: 20080410
  11. GASTER D [Concomitant]
     Indication: DRUG USE FOR UNKNOWN INDICATION
     Route: 048
     Dates: start: 20080401, end: 20080409
  12. SOLITA-T NO.1 [Concomitant]
     Indication: DRUG USE FOR UNKNOWN INDICATION
     Route: 042
     Dates: start: 20080404, end: 20080404
  13. SOLITA-T NO.1 [Concomitant]
     Route: 042
     Dates: start: 20080407, end: 20080407
  14. SOLITA-T NO.1 [Concomitant]
     Route: 042
     Dates: start: 20080406, end: 20080406
  15. SOLITA-T NO.1 [Concomitant]
     Route: 042
     Dates: start: 20080408, end: 20080410
  16. SOLITA-T NO.1 [Concomitant]
     Route: 042
     Dates: start: 20080405, end: 20080405
  17. CALCICOL [Concomitant]
     Indication: DRUG USE FOR UNKNOWN INDICATION
     Route: 042
     Dates: start: 20080404, end: 20080404
  18. HUMULIN N [Concomitant]
     Indication: DRUG USE FOR UNKNOWN INDICATION
     Route: 042
     Dates: start: 20080404, end: 20080404
  19. GLUCOSE [Concomitant]
     Indication: DRUG USE FOR UNKNOWN INDICATION
     Route: 042
     Dates: start: 20080404, end: 20080405
  20. GLUCOSE [Concomitant]
     Route: 042
     Dates: start: 20080408, end: 20080410
  21. GLUCOSE [Concomitant]
     Route: 042
     Dates: start: 20080405, end: 20080410
  22. MEYLON [Concomitant]
     Indication: DRUG USE FOR UNKNOWN INDICATION
     Route: 042
     Dates: start: 20080404, end: 20080404
  23. HUMULIN R [Concomitant]
     Indication: DRUG USE FOR UNKNOWN INDICATION
     Route: 042
     Dates: start: 20080404, end: 20080405
  24. NEO-MINOPHAGEN C [Concomitant]
     Indication: DRUG USE FOR UNKNOWN INDICATION
     Route: 042
     Dates: start: 20080405, end: 20080410
  25. ISOTONIC SODIUM CHLORIDE SOLUTION [Concomitant]
     Indication: DRUG USE FOR UNKNOWN INDICATION
     Route: 042
     Dates: start: 20080405, end: 20080410
  26. ISOTONIC SODIUM CHLORIDE SOLUTION [Concomitant]
     Route: 042
     Dates: start: 20080410, end: 20080410
  27. FAMOTIDINE [Concomitant]
     Indication: DRUG USE FOR UNKNOWN INDICATION
     Route: 048
     Dates: start: 20080405, end: 20080410
  28. LASIX [Concomitant]
     Route: 042
     Dates: start: 20080405, end: 20080407
  29. METILON [Concomitant]
     Indication: DRUG USE FOR UNKNOWN INDICATION
     Route: 042
     Dates: start: 20080405, end: 20080408
  30. 10% SODIUM CHLORIDE [Concomitant]
     Indication: DRUG USE FOR UNKNOWN INDICATION
     Route: 042
     Dates: start: 20080408, end: 20080410
  31. VASOLAN [Concomitant]
     Indication: DRUG USE FOR UNKNOWN INDICATION
     Route: 048
     Dates: start: 20080407, end: 20080407
  32. BISOLVON [Concomitant]
     Indication: DRUG USE FOR UNKNOWN INDICATION
     Route: 042
     Dates: start: 20080410, end: 20080410
  33. UNASYN [Concomitant]
     Indication: DRUG USE FOR UNKNOWN INDICATION
     Route: 042
     Dates: start: 20080405, end: 20080407
  34. UNASYN [Concomitant]
     Route: 042
     Dates: start: 20080410, end: 20080410
  35. HALOPERIDOL [Concomitant]
     Indication: DRUG USE FOR UNKNOWN INDICATION
     Route: 048
     Dates: start: 20080410, end: 20080410

REACTIONS (5)
  - BRONCHIAL HAEMORRHAGE [None]
  - DEHYDRATION [None]
  - FATIGUE [None]
  - HYPERKALAEMIA [None]
  - PLEURAL HAEMORRHAGE [None]
